FAERS Safety Report 12649609 (Version 1)
Quarter: 2016Q3

REPORT INFORMATION
  Report Type: Report from Study
  Country: US (occurrence: US)
  Receive Date: 20160812
  Receipt Date: 20160812
  Transmission Date: 20161109
  Serious: Yes (Hospitalization)
  Sender: FDA-Public Use
  Company Number: US-ABBVIE-16P-163-1696406-00

PATIENT
  Age: 41 Year
  Sex: Female

DRUGS (1)
  1. LUPRON DEPOT [Suspect]
     Active Substance: LEUPROLIDE ACETATE
     Indication: ENDOMETRIOSIS
     Route: 065
     Dates: start: 20160418

REACTIONS (4)
  - Anaemia [Unknown]
  - Pain [Unknown]
  - Acute kidney injury [Unknown]
  - Menorrhagia [Unknown]

NARRATIVE: CASE EVENT DATE: 201605
